FAERS Safety Report 16227567 (Version 1)
Quarter: 2019Q2

REPORT INFORMATION
  Report Type: Spontaneous
  Country: DE (occurrence: DE)
  Receive Date: 20190423
  Receipt Date: 20190423
  Transmission Date: 20190711
  Serious: Yes (Death, Other)
  Sender: FDA-Public Use
  Company Number: DE-MICRO LABS LIMITED-ML2019-00946

PATIENT

DRUGS (2)
  1. VERAPAMIL HYDROCHLORIDE. [Suspect]
     Active Substance: VERAPAMIL HYDROCHLORIDE
  2. BISOPROLOL [Suspect]
     Active Substance: BISOPROLOL

REACTIONS (2)
  - Toxicity to various agents [Fatal]
  - Overdose [Fatal]
